FAERS Safety Report 6967901-1 (Version None)
Quarter: 2010Q3

REPORT INFORMATION
  Report Type: 
  Country: None (occurrence: None)
  Receive Date: 20100907
  Receipt Date: 20100617
  Transmission Date: 20110219
  Serious: No
  Sender: FDA-Public Use
  Company Number: A0869317A

PATIENT
  Sex: Female

DRUGS (1)
  1. ROPINIROLE [Suspect]
     Indication: PRODUCT USED FOR UNKNOWN INDICATION
     Dosage: .5MG PER DAY
     Route: 065

REACTIONS (3)
  - ARTHRALGIA [None]
  - BURNING SENSATION [None]
  - JOINT SWELLING [None]
